FAERS Safety Report 7552717-8 (Version None)
Quarter: 2011Q2

REPORT INFORMATION
  Report Type: 
  Country: None (occurrence: None)
  Receive Date: 20110616
  Receipt Date: 20110523
  Transmission Date: 20111010
  Serious: No
  Sender: FDA-Public Use
  Company Number: US-ABBOTT-11P-163-0727662-00

PATIENT
  Sex: Male
  Weight: 93.978 kg

DRUGS (3)
  1. TRILIPIX [Suspect]
     Indication: LOW DENSITY LIPOPROTEIN ABNORMAL
     Dates: start: 20110301, end: 20110515
  2. ZETIA [Concomitant]
     Indication: PRODUCT USED FOR UNKNOWN INDICATION
  3. MICARDIS [Concomitant]
     Indication: PRODUCT USED FOR UNKNOWN INDICATION

REACTIONS (4)
  - FISTULA [None]
  - CONSTIPATION [None]
  - PROCTALGIA [None]
  - HAEMORRHAGE [None]
